FAERS Safety Report 5713936-6 (Version None)
Quarter: 2008Q2

REPORT INFORMATION
  Report Type: 
  Country: None (occurrence: None)
  Receive Date: 20080422
  Receipt Date: 20080422
  Transmission Date: 20081010
  Serious: Yes (Hospitalization, Disabling)
  Sender: FDA-Public Use
  Company Number: None

PATIENT
  Age: 40 Year
  Sex: Female
  Weight: 56.6996 kg

DRUGS (1)
  1. PAXIL [Suspect]
     Dosage: 20 MG 1 TABLET/DAY ORAL
     Route: 048
     Dates: start: 20070501

REACTIONS (1)
  - NERVOUS SYSTEM DISORDER [None]
